FAERS Safety Report 8586530-X (Version None)
Quarter: 2012Q3

REPORT INFORMATION
  Report Type: 
  Country: None (occurrence: None)
  Receive Date: 20120810
  Receipt Date: 20120806
  Transmission Date: 20120928
  Serious: Yes (Life-Threatening, Hospitalization, Disabling, Other)
  Sender: FDA-Public Use
  Company Number: US-JNJFOC-20120305548

PATIENT
  Sex: Female
  Weight: 72.94 kg

DRUGS (9)
  1. TOPAMAX [Suspect]
     Indication: CONVULSION
     Route: 048
     Dates: start: 20060504
  2. LOVASTATIN [Concomitant]
     Indication: BLOOD CHOLESTEROL INCREASED
     Route: 065
     Dates: start: 20110219, end: 20120319
  3. NARDIL [Concomitant]
     Indication: DEPRESSION
     Route: 065
  4. LISINOPRIL [Suspect]
     Indication: HYPERTENSION
     Route: 048
     Dates: start: 20060504, end: 20110101
  5. CAPSAICIN [Suspect]
     Indication: SPINAL DISORDER
     Route: 065
  6. UNSPECIFIED ANTIDEPRESSANTS [Suspect]
     Indication: DEPRESSION
     Route: 065
  7. STEROID INJECTION NOS [Suspect]
     Indication: BACK INJURY
     Route: 008
     Dates: start: 19960101, end: 20040101
  8. FENOFIBRATE [Suspect]
     Indication: BLOOD TRIGLYCERIDES INCREASED
     Route: 065
     Dates: start: 20110901, end: 20111101
  9. PREDNISONE TAB [Suspect]
     Indication: URTICARIA
     Route: 065
     Dates: start: 20111101, end: 20110101

REACTIONS (7)
  - RECTOCELE [None]
  - CYSTOCELE [None]
  - CATARACT [None]
  - BLOOD TRIGLYCERIDES INCREASED [None]
  - HEPATIC FAILURE [None]
  - BLOOD PRESSURE FLUCTUATION [None]
  - OEDEMA PERIPHERAL [None]
